FAERS Safety Report 6930710-3 (Version None)
Quarter: 2010Q3

REPORT INFORMATION
  Report Type: 
  Country: None (occurrence: None)
  Receive Date: 20100810
  Receipt Date: 20090822
  Transmission Date: 20110219
  Serious: Yes (Other)
  Sender: FDA-Public Use
  Company Number: 2009230191

PATIENT
  Age: 77 Year
  Sex: Female

DRUGS (1)
  1. FLAGYL [Suspect]

REACTIONS (4)
  - ABSCESS DRAINAGE [None]
  - HYPERSENSITIVITY [None]
  - LIP SWELLING [None]
  - OEDEMA MOUTH [None]
